FAERS Safety Report 6163406-9 (Version None)
Quarter: 2009Q2

REPORT INFORMATION
  Report Type: 
  Country: None (occurrence: None)
  Receive Date: 20090420
  Receipt Date: 20090420
  Transmission Date: 20091009
  Serious: No
  Sender: FDA-Public Use
  Company Number: None

PATIENT
  Age: 63 Year
  Sex: Male
  Weight: 109.8 kg

DRUGS (7)
  1. VARENICLINE [Suspect]
     Indication: SMOKING CESSATION THERAPY
     Dosage: 1 MG BID PO
     Route: 048
     Dates: start: 20070419, end: 20070511
  2. BUPROPION HCL [Concomitant]
  3. CILOSTAZOL [Concomitant]
  4. DOCUSATE SODIUM [Concomitant]
  5. OMEPRAZOLE [Concomitant]
  6. SENNOSIDES [Concomitant]
  7. TESTOSTERONE CYP IM INJ [Concomitant]

REACTIONS (1)
  - DELIRIUM [None]
